FAERS Safety Report 9251446 (Version 1)
Quarter: 2013Q1

REPORT INFORMATION
  Report Type: Spontaneous
  Country: US (occurrence: None)
  Receive Date: 20130305
  Receipt Date: 20130305
  Transmission Date: 20140127
  Serious: Yes (Other)
  Sender: FDA-Public Use
  Company Number: 163-21880-12082274

PATIENT
  Age: 64 Year
  Sex: Female
  Weight: 64.86 kg

DRUGS (6)
  1. REVLIMID [Suspect]
     Indication: MYELODYSPLASTIC SYNDROME
     Route: 048
     Dates: start: 20111122
  2. CITRACAL (CALCIUM CITRATE) [Concomitant]
  3. FISH OIL (FISH OIL) [Concomitant]
  4. VITAMIN B6 (PYRIDOXINE HYDROCHLORIDE) [Concomitant]
  5. VITAMIN D3 (COLECALCIFEROL) [Concomitant]
  6. VITAMIN E (TOCOPHEROL) [Concomitant]

REACTIONS (2)
  - Full blood count decreased [None]
  - Swelling face [None]
